FAERS Safety Report 25663018 (Version 1)
Quarter: 2025Q3

REPORT INFORMATION
  Report Type: Spontaneous
  Country: BR (occurrence: BR)
  Receive Date: 20250811
  Receipt Date: 20250811
  Transmission Date: 20251021
  Serious: Yes (Other)
  Sender: ROCHE
  Company Number: BR-ROCHE-10000354315

PATIENT
  Age: 82 Year
  Sex: Male

DRUGS (3)
  1. ATEZOLIZUMAB [Suspect]
     Active Substance: ATEZOLIZUMAB
     Indication: Hepatocellular carcinoma
     Route: 065
     Dates: start: 20231222
  2. BEVACIZUMAB [Suspect]
     Active Substance: BEVACIZUMAB
     Indication: Hepatocellular carcinoma
     Route: 065
     Dates: start: 20231222
  3. LEVOTHYROXINE [Concomitant]
     Active Substance: LEVOTHYROXINE

REACTIONS (8)
  - Hepatic function abnormal [Unknown]
  - Anaemia [Unknown]
  - Thrombocytopenia [Recovering/Resolving]
  - Dermatitis [Unknown]
  - Nutritional supplementation [Recovered/Resolved]
  - Autoimmune hepatitis [Recovered/Resolved]
  - Therapy partial responder [Unknown]
  - Weight abnormal [Unknown]
